FAERS Safety Report 11267898 (Version 1)
Quarter: 2015Q3

REPORT INFORMATION
  Report Type: Spontaneous
  Country: US (occurrence: US)
  Receive Date: 20150713
  Receipt Date: 20150713
  Transmission Date: 20151125
  Serious: No
  Sender: FDA-Public Use
  Company Number: US-TAKEDA-2014MPI000269

PATIENT
  Age: 58 Year
  Sex: Female

DRUGS (2)
  1. VELCADE [Suspect]
     Active Substance: BORTEZOMIB
     Dosage: UNK
     Dates: start: 201312, end: 20131216
  2. VELCADE [Suspect]
     Active Substance: BORTEZOMIB
     Indication: PLASMA CELL MYELOMA
     Dosage: CYCLIC (IV PUSH ON DAY 1 AND 4 OF EACH 21 DAYS CYCLE)
     Route: 042
     Dates: start: 20130805, end: 201311

REACTIONS (2)
  - No adverse event [Unknown]
  - Therapy change [Unknown]
